FAERS Safety Report 21485825 (Version 1)
Quarter: 2022Q4

REPORT INFORMATION
  Report Type: Spontaneous
  Country: US (occurrence: None)
  Receive Date: 20221019
  Receipt Date: 20221019
  Transmission Date: 20230112
  Serious: Yes (Hospitalization)
  Sender: FDA-Public Use
  Company Number: None

PATIENT
  Age: 64 Year
  Sex: Male

DRUGS (6)
  1. IMATINIB MESYLATE [Suspect]
     Active Substance: IMATINIB MESYLATE
     Indication: Gastrointestinal stromal tumour
     Dosage: TAKE 3 TABLETS BY MOUTH DAILY?
     Route: 048
     Dates: start: 20221008
  2. ATORVASTATIN [Concomitant]
     Active Substance: ATORVASTATIN
  3. DESCOVY [Concomitant]
     Active Substance: EMTRICITABINE\TENOFOVIR ALAFENAMIDE FUMARATE
  4. ENTECAVIR [Concomitant]
     Active Substance: ENTECAVIR
  5. TADALAFIL [Concomitant]
     Active Substance: TADALAFIL
  6. TELMISA/HCTZ TAB [Concomitant]

REACTIONS (2)
  - Red blood cell count decreased [None]
  - Cough [None]

NARRATIVE: CASE EVENT DATE: 20220901
